FAERS Safety Report 15477106 (Version 2)
Quarter: 2019Q1

REPORT INFORMATION
  Report Type: Spontaneous
  Country: US (occurrence: US)
  Receive Date: 20181009
  Receipt Date: 20190108
  Transmission Date: 20190417
  Serious: No
  Sender: FDA-Public Use
  Company Number: US-PFIZER INC-2018399061

PATIENT
  Age: 14 Year
  Sex: Male
  Weight: 44.9 kg

DRUGS (1)
  1. GENOTROPIN [Suspect]
     Active Substance: SOMATROPIN
     Indication: BLOOD GROWTH HORMONE
     Dosage: 2.6 MG, 1X/DAY
     Route: 058

REACTIONS (2)
  - Product dose omission [Unknown]
  - Intentional product use issue [Unknown]
